FAERS Safety Report 11217807 (Version 1)
Quarter: 2015Q2

REPORT INFORMATION
  Report Type: Other
  Country: US (occurrence: US)
  Receive Date: 20150625
  Receipt Date: 20150625
  Transmission Date: 20150821
  Serious: No
  Sender: FDA-Public Use
  Company Number: US-MYLANLABS-2015M1014815

PATIENT
  Age: 68 Year
  Sex: Female
  Weight: 86.17 kg

DRUGS (4)
  1. CANDESARTAN CILEXETIL AND HYDROCHLOROTHIAZIDE TABLETS [Suspect]
     Active Substance: CANDESARTAN CILEXETIL\HYDROCHLOROTHIAZIDE
     Indication: HYPERTENSION
     Dosage: 32/12.5 MG, QD
     Route: 048
     Dates: start: 20150410, end: 20150421
  2. ESTRADIOL. [Concomitant]
     Active Substance: ESTRADIOL
     Dosage: 2 MG, QD
     Dates: start: 1990
  3. DILTIAZEM HYDROCHLORIDE EXTENDED RELEASE [Concomitant]
     Active Substance: DILTIAZEM HYDROCHLORIDE
     Dosage: 300 MG, QD
     Dates: start: 1995
  4. CANDESARTAN CILEXETIL AND HYDROCHLOROTHIAZIDE TABLETS [Suspect]
     Active Substance: CANDESARTAN CILEXETIL\HYDROCHLOROTHIAZIDE
     Dosage: 32/12.5 MG, QD
     Route: 048
     Dates: start: 20150423, end: 20150425

REACTIONS (11)
  - Vision blurred [Recovered/Resolved]
  - Blood pressure increased [None]
  - Anxiety [Recovered/Resolved]
  - Disturbance in attention [Recovered/Resolved]
  - Musculoskeletal pain [Recovered/Resolved]
  - Dizziness [Recovered/Resolved]
  - Pain [Recovered/Resolved]
  - Fatigue [Recovered/Resolved]
  - Palpitations [Recovered/Resolved]
  - Dizziness postural [Recovered/Resolved]
  - Middle insomnia [Recovered/Resolved]

NARRATIVE: CASE EVENT DATE: 20150410
